FAERS Safety Report 9410172 (Version 2)
Quarter: 2013Q4

REPORT INFORMATION
  Report Type: Report from Study
  Country: US (occurrence: US)
  Receive Date: 20130719
  Receipt Date: 20131126
  Transmission Date: 20140711
  Serious: Yes (Hospitalization)
  Sender: FDA-Public Use
  Company Number: US-PURDUE-USA-2013-0104487

PATIENT
  Age: 58 Year
  Sex: Male
  Weight: 58.96 kg

DRUGS (1)
  1. OXYCONTIN (NDA 22-272) [Suspect]
     Indication: BACK PAIN
     Dosage: 30 MG, Q12H
     Route: 048

REACTIONS (1)
  - Femur fracture [Recovered/Resolved]
